FAERS Safety Report 13014911 (Version 2)
Quarter: 2016Q4

REPORT INFORMATION
  Report Type: Spontaneous
  Country: US (occurrence: US)
  Receive Date: 20161209
  Receipt Date: 20161212
  Transmission Date: 20170207
  Serious: Yes (Hospitalization, Other)
  Sender: FDA-Public Use
  Company Number: US-ASTRAZENECA-2016SF22449

PATIENT
  Age: 65 Year
  Sex: Female

DRUGS (4)
  1. AVYCAZ [Suspect]
     Active Substance: AVIBACTAM SODIUM\CEFTAZIDIME
     Indication: PRODUCT USED FOR UNKNOWN INDICATION
     Route: 042
  2. MEROPENEM. [Suspect]
     Active Substance: MEROPENEM
     Route: 042
  3. MEROPENEM. [Suspect]
     Active Substance: MEROPENEM
     Route: 042
  4. AVYCAZ [Suspect]
     Active Substance: AVIBACTAM SODIUM\CEFTAZIDIME
     Indication: PRODUCT USED FOR UNKNOWN INDICATION
     Route: 042

REACTIONS (10)
  - Abdominal pain [Unknown]
  - Septic shock [Unknown]
  - Dyspnoea [Unknown]
  - Pathogen resistance [Unknown]
  - Hypotension [Unknown]
  - Dysuria [Unknown]
  - Pyrexia [Unknown]
  - Mental status changes [Unknown]
  - Respiratory failure [Unknown]
  - Pneumonia [Unknown]
